FAERS Safety Report 8881491 (Version 4)
Quarter: 2014Q1

REPORT INFORMATION
  Report Type: Spontaneous
  Country: US (occurrence: US)
  Receive Date: 20121102
  Receipt Date: 20140117
  Transmission Date: 20141002
  Serious: Yes (Hospitalization, Disabling, Other)
  Sender: FDA-Public Use
  Company Number: US-009507513-1207USA00062

PATIENT
  Sex: Female
  Weight: 77.98 kg

DRUGS (13)
  1. FOSAMAX [Suspect]
     Indication: OSTEOPOROSIS
     Dosage: 35 MG, QW
     Route: 048
     Dates: start: 20011105, end: 200312
  2. FOSAMAX [Suspect]
     Indication: OSTEOPENIA
     Dosage: 70 MG, UNK
     Route: 048
     Dates: start: 20040102, end: 20060628
  3. FOSAMAX [Suspect]
     Dosage: 35 MG, QD
     Route: 048
  4. FOSAMAX PLUS D [Suspect]
     Indication: OSTEOPOROSIS
     Dosage: 70 MG/2800 UNITS,QW
     Route: 048
     Dates: start: 200607
  5. ALENDRONATE SODIUM [Suspect]
     Indication: OSTEOPOROSIS
     Dosage: 70 MG, UNK
     Route: 048
     Dates: start: 201001, end: 20110106
  6. ALENDRONATE SODIUM [Suspect]
     Indication: OSTEOPENIA
  7. FOSAMAX [Suspect]
     Indication: OSTEOPOROSIS
     Dosage: UNK
     Route: 048
     Dates: start: 201003, end: 201101
  8. FOSAMAX [Suspect]
     Indication: OSTEOPENIA
  9. CHOLECALCIFEROL [Concomitant]
     Dosage: 5000 UNITS TID
     Dates: start: 2001
  10. MAGNESIUM (UNSPECIFIED) [Concomitant]
     Dosage: 100 MG,QD
     Dates: start: 2001
  11. CALCIUM (UNSPECIFIED) [Concomitant]
     Indication: OSTEOPENIA
     Dosage: 250 MG, BID
     Dates: start: 2001
  12. SYNTHROID [Concomitant]
     Indication: HYPOTHYROIDISM
     Dosage: 0.1 MG, UNK
  13. DIOVAN [Concomitant]
     Indication: HYPERTENSION
     Dosage: 160 MG, QD

REACTIONS (32)
  - Open reduction of fracture [Unknown]
  - Osteoporosis [Unknown]
  - Bone density decreased [Unknown]
  - Foot fracture [Unknown]
  - Open reduction of fracture [Unknown]
  - Sinus tachycardia [Unknown]
  - Gait disturbance [Unknown]
  - Neuropathy peripheral [Not Recovered/Not Resolved]
  - Fall [Unknown]
  - Femur fracture [Recovered/Resolved]
  - Back pain [Unknown]
  - Foot fracture [Unknown]
  - Neuropathy peripheral [Unknown]
  - Foot fracture [Unknown]
  - Insomnia [Not Recovered/Not Resolved]
  - Limb injury [Unknown]
  - Migraine [Unknown]
  - Bunion [Unknown]
  - Bunion operation [Unknown]
  - Foot operation [Unknown]
  - Bunion operation [Unknown]
  - Transfusion [Unknown]
  - Neurectomy [Unknown]
  - Depression [Unknown]
  - Device dislocation [Unknown]
  - Foot fracture [Unknown]
  - Foot deformity [Unknown]
  - Fungal infection [Unknown]
  - Acne [Unknown]
  - Fungal infection [Unknown]
  - Inappropriate schedule of drug administration [Unknown]
  - Pain in jaw [Unknown]
